FAERS Safety Report 4821923-5 (Version None)
Quarter: 2005Q4

REPORT INFORMATION
  Report Type: 
  Country: None (occurrence: None)
  Receive Date: 20051103
  Receipt Date: 20051017
  Transmission Date: 20060501
  Serious: Yes (Hospitalization)
  Sender: FDA-Public Use
  Company Number: EWC051046573

PATIENT
  Age: 79 Year
  Sex: Female

DRUGS (3)
  1. FORSTEO (TERIPARATIDE) [Suspect]
     Indication: OSTEOPOROSIS
     Dosage: 20 UG/1 DAY
     Dates: start: 20050928, end: 20051009
  2. PHENYTOIN SODIUM [Concomitant]
  3. PHENOBARBITAL TAB [Concomitant]

REACTIONS (2)
  - DISEASE RECURRENCE [None]
  - EPILEPSY [None]
